FAERS Safety Report 6655150-6 (Version None)
Quarter: 2010Q1

REPORT INFORMATION
  Report Type: 
  Country: None (occurrence: None)
  Receive Date: 20100329
  Receipt Date: 20100323
  Transmission Date: 20100710
  Serious: Yes (Hospitalization)
  Sender: FDA-Public Use
  Company Number: US-MYLANLABS-2010S1004521

PATIENT
  Age: 64 Year
  Sex: Female
  Weight: 86.4 kg

DRUGS (17)
  1. PHENYTOIN SODIUM [Suspect]
     Indication: PETIT MAL EPILEPSY
     Route: 048
     Dates: start: 20090801
  2. PHENYTOIN SODIUM [Suspect]
     Route: 048
     Dates: start: 20090801
  3. DILANTIN [Suspect]
     Indication: PETIT MAL EPILEPSY
     Route: 048
     Dates: start: 20090801
  4. LIGNOSPAN /00033402/ [Suspect]
     Indication: TOOTH REPAIR
     Route: 004
     Dates: start: 20100223, end: 20100223
  5. MEPIVACAINE HCL [Suspect]
     Indication: TOOTH REPAIR
     Route: 004
     Dates: start: 20100223, end: 20100223
  6. COPAXONE [Concomitant]
     Indication: MULTIPLE SCLEROSIS
     Route: 058
  7. BACLOFEN [Concomitant]
     Indication: MULTIPLE SCLEROSIS
     Route: 048
  8. VESICARE [Concomitant]
     Indication: URINARY INCONTINENCE
     Route: 048
  9. MULTI-VITAMIN [Concomitant]
     Route: 048
  10. LIPITOR [Concomitant]
     Indication: BLOOD CHOLESTEROL INCREASED
     Route: 048
  11. EPIPEN [Concomitant]
     Indication: ALLERGY TO ARTHROPOD STING
     Route: 030
  12. CALCIUM [Concomitant]
     Route: 048
  13. COLACE [Concomitant]
     Route: 048
  14. COLACE [Concomitant]
     Route: 048
  15. ECOTRIN [Concomitant]
     Route: 048
  16. TOPROL-XL [Concomitant]
     Route: 048
  17. TOPROL-XL [Concomitant]
     Route: 048

REACTIONS (6)
  - ANAPHYLACTIC REACTION [None]
  - CHEST PAIN [None]
  - DRUG INTERACTION [None]
  - DYSPNOEA [None]
  - FEELING ABNORMAL [None]
  - MYOCARDIAL INFARCTION [None]
